FAERS Safety Report 18009191 (Version 1)
Quarter: 2020Q3

REPORT INFORMATION
  Report Type: Spontaneous
  Country: US (occurrence: US)
  Receive Date: 20200710
  Receipt Date: 20200710
  Transmission Date: 20201103
  Serious: Yes (Hospitalization)
  Sender: FDA-Public Use
  Company Number: US-SAOL THERAPEUTICS-2020SAO00046

PATIENT
  Age: 12 Year
  Sex: Male
  Weight: 33.56 kg

DRUGS (13)
  1. LIORESAL [Suspect]
     Active Substance: BACLOFEN
     Indication: MUSCLE SPASTICITY
     Dosage: 600.4 ?G, \DAY
     Route: 037
     Dates: start: 2015
  2. TRAZODONE [Concomitant]
     Active Substance: TRAZODONE HYDROCHLORIDE
  3. ENEMA (SODIUM PHOSPHATE, DIBASIC\SODIUM PHOSPHATE, MONOBASIC) [Concomitant]
     Active Substance: SODIUM PHOSPHATE, DIBASIC\SODIUM PHOSPHATE, MONOBASIC
  4. ALPRAZOLAM. [Concomitant]
     Active Substance: ALPRAZOLAM
  5. KEPPRA [Concomitant]
     Active Substance: LEVETIRACETAM
  6. LIORESAL [Suspect]
     Active Substance: BACLOFEN
     Dosage: 96 ?G, \DAY
     Route: 037
  7. BACLOFEN. [Concomitant]
     Active Substance: BACLOFEN
     Route: 048
  8. CLONAZEPAM. [Concomitant]
     Active Substance: CLONAZEPAM
  9. MIRALAX [Concomitant]
     Active Substance: POLYETHYLENE GLYCOL 3350
  10. ONDANSETRON [Concomitant]
     Active Substance: ONDANSETRON
  11. OXCARBAZEPINE. [Concomitant]
     Active Substance: OXCARBAZEPINE
  12. DIAZEPAM. [Concomitant]
     Active Substance: DIAZEPAM
  13. SENNA [Concomitant]
     Active Substance: SENNA LEAF\SENNOSIDES\SENNOSIDES A AND B

REACTIONS (3)
  - Complication associated with device [Recovered/Resolved]
  - Drug withdrawal syndrome [Recovered/Resolved]
  - Muscle tightness [Not Recovered/Not Resolved]

NARRATIVE: CASE EVENT DATE: 20200110
